FAERS Safety Report 8885178 (Version 1)
Quarter: 2012Q4

REPORT INFORMATION
  Report Type: 
  Country: US (occurrence: US)
  Receive Date: 20121105
  Receipt Date: 20121105
  Transmission Date: 20130627
  Serious: No
  Sender: FDA-Public Use
  Company Number: US-009507513-1210USA013716

PATIENT
  Sex: Female
  Weight: 77.55 kg

DRUGS (6)
  1. TIMOLOL MALEATE [Suspect]
     Indication: GLAUCOMA
     Dosage: 1 Gtt in each eye qam
     Route: 047
     Dates: start: 199801
  2. LEVOTHYROXINE SODIUM [Concomitant]
     Indication: THYROID DISORDER
     Dosage: 25 Microgram, UNK
  3. LEXAPRO [Concomitant]
     Indication: DEPRESSION
     Dosage: UNK
  4. CRESTOR [Concomitant]
     Indication: BLOOD CHOLESTEROL INCREASED
     Dosage: UNK
  5. POTASSIUM (UNSPECIFIED) [Concomitant]
     Indication: ROUTINE HEALTH MAINTENANCE
     Dosage: UNK
  6. PROPRANOLOL HYDROCHLORIDE [Concomitant]
     Dosage: UNK

REACTIONS (7)
  - Hallucination, auditory [Recovering/Resolving]
  - Poor quality sleep [Recovering/Resolving]
  - Hallucination, visual [Recovering/Resolving]
  - Product dropper issue [Unknown]
  - Rhinorrhoea [Recovering/Resolving]
  - Dysphonia [Recovering/Resolving]
  - Motion sickness [Recovering/Resolving]
